FAERS Safety Report 8818080 (Version 3)
Quarter: 2012Q4

REPORT INFORMATION
  Report Type: 
  Country: JP (occurrence: JP)
  Receive Date: 20121001
  Receipt Date: 20121105
  Transmission Date: 20130627
  Serious: Yes (Death, Life-Threatening)
  Sender: FDA-Public Use
  Company Number: JP-ASTRAZENECA-2012SE74855

PATIENT
  Age: 75 Year
  Sex: Female

DRUGS (6)
  1. ANAPEINE [Suspect]
     Indication: NERVE BLOCK
     Route: 053
     Dates: start: 20111222, end: 20111222
  2. DIPRIVAN [Concomitant]
     Dosage: Dose unknown
     Route: 042
     Dates: start: 20111222, end: 20111222
  3. ESLAX [Concomitant]
     Dosage: Dose unknown
     Route: 065
     Dates: start: 20111222, end: 20111222
  4. SEVOFLURANE [Concomitant]
     Dosage: Dose unknown
     Route: 065
     Dates: start: 20111222, end: 20111222
  5. ULTIVA [Concomitant]
     Dosage: Dose unknown
     Route: 065
     Dates: start: 20111222, end: 20111222
  6. FENTANYL [Concomitant]
     Dosage: Dose unknown
     Route: 065
     Dates: start: 20111222, end: 20111222

REACTIONS (3)
  - Circulatory collapse [Fatal]
  - Cardiac arrest [Fatal]
  - Ventricular arrhythmia [Recovered/Resolved]
